FAERS Safety Report 4838603-2 (Version None)
Quarter: 2005Q4

REPORT INFORMATION
  Report Type: 
  Country: None (occurrence: None)
  Receive Date: 20051024
  Receipt Date: 20050929
  Transmission Date: 20060501
  Serious: No
  Sender: FDA-Public Use
  Company Number: 218206

PATIENT
  Age: 54 Year
  Sex: Female
  Weight: 89 kg

DRUGS (2)
  1. XOLAIR [Suspect]
     Indication: ASTHMA
     Dates: start: 20050119, end: 20050720
  2. LEVOXYL [Concomitant]

REACTIONS (1)
  - WEIGHT INCREASED [None]
